FAERS Safety Report 5718599-1 (Version None)
Quarter: 2008Q2

REPORT INFORMATION
  Report Type: 
  Country: None (occurrence: None)
  Receive Date: 20080425
  Receipt Date: 20080415
  Transmission Date: 20081010
  Serious: Yes (Life-Threatening, Hospitalization)
  Sender: FDA-Public Use
  Company Number: GB-PFIZER INC-2008025761

PATIENT
  Sex: Male

DRUGS (4)
  1. ATORVASTATIN CALCIUM [Suspect]
     Route: 048
  2. FUCIDINE CAP [Suspect]
  3. EZETIMIBE [Suspect]
  4. ANTIBIOTICS [Suspect]

REACTIONS (3)
  - DEVICE RELATED INFECTION [None]
  - PNEUMONIA [None]
  - RHABDOMYOLYSIS [None]
